FAERS Safety Report 10515954 (Version 1)
Quarter: 2014Q4

REPORT INFORMATION
  Report Type: Report from Study
  Country: CA (occurrence: CA)
  Receive Date: 20141014
  Receipt Date: 20141014
  Transmission Date: 20150528
  Serious: Yes (Hospitalization)
  Sender: FDA-Public Use
  Company Number: CA-ABBVIE-14P-028-1293743-00

PATIENT
  Sex: Male
  Weight: 77.18 kg

DRUGS (2)
  1. KALETRA [Suspect]
     Active Substance: LOPINAVIR\RITONAVIR
     Indication: ANTIRETROVIRAL THERAPY
     Dosage: UNIT DOSE 200MG/50MG 2 TABLET. DAILY 800MG/200MG
     Route: 065
     Dates: start: 20080501
  2. KALETRA [Suspect]
     Active Substance: LOPINAVIR\RITONAVIR
     Indication: HIV INFECTION

REACTIONS (2)
  - Fall [Recovering/Resolving]
  - Fatigue [Recovering/Resolving]
